FAERS Safety Report 17716420 (Version 1)
Quarter: 2020Q2

REPORT INFORMATION
  Report Type: Report from Study
  Country: ES (occurrence: ES)
  Receive Date: 20200428
  Receipt Date: 20200428
  Transmission Date: 20200714
  Serious: Yes (Other)
  Sender: FDA-Public Use
  Company Number: ES-ROCHE-2587455

PATIENT

DRUGS (7)
  1. METHYLPREDNISOLONE. [Suspect]
     Active Substance: METHYLPREDNISOLONE
     Indication: IMMUNOSUPPRESSION
     Route: 065
  2. CYCLOPHOSPHAMIDE. [Suspect]
     Active Substance: CYCLOPHOSPHAMIDE
     Indication: IMMUNOSUPPRESSION
     Route: 065
  3. AZATHIOPRINE. [Suspect]
     Active Substance: AZATHIOPRINE
     Indication: IMMUNOSUPPRESSION
     Route: 065
  4. METHOTREXATE. [Suspect]
     Active Substance: METHOTREXATE
     Indication: IMMUNOSUPPRESSION
     Route: 065
  5. MYCOPHENOLATE MOFETIL. [Suspect]
     Active Substance: MYCOPHENOLATE MOFETIL
     Indication: IMMUNOSUPPRESSION
     Route: 065
  6. SULFAMETHOXAZOLE/TRIMETHOPRIM [Concomitant]
     Active Substance: SULFAMETHOXAZOLE\TRIMETHOPRIM
  7. RITUXIMAB. [Suspect]
     Active Substance: RITUXIMAB
     Indication: IMMUNOSUPPRESSION
     Route: 065

REACTIONS (20)
  - Leukopenia [Unknown]
  - Varicella zoster virus infection [Unknown]
  - Herpes simplex [Unknown]
  - Hepatitis B [Unknown]
  - Bronchitis [Unknown]
  - Urinary tract infection [Unknown]
  - Pneumonia [Unknown]
  - Leishmaniasis [Unknown]
  - H1N1 influenza [Unknown]
  - Soft tissue infection [Unknown]
  - Device related sepsis [Unknown]
  - Bacteraemia [Unknown]
  - Lower respiratory tract infection [Unknown]
  - Central nervous system infection [Unknown]
  - Mycobacterial infection [Unknown]
  - Gastrointestinal infection [Unknown]
  - Device related infection [Unknown]
  - Systemic mycosis [Unknown]
  - Pneumonia cytomegaloviral [Unknown]
  - Tuberculosis [Unknown]
